FAERS Safety Report 7945058-8 (Version None)
Quarter: 2011Q4

REPORT INFORMATION
  Report Type: 
  Country: None (occurrence: None)
  Receive Date: 20111129
  Receipt Date: 20111123
  Transmission Date: 20120403
  Serious: Yes (Other)
  Sender: FDA-Public Use
  Company Number: CA-PFIZER INC-2011248283

PATIENT
  Age: 65 Year
  Sex: Female

DRUGS (13)
  1. CALCIUM [Concomitant]
     Dosage: UNK
  2. COUMADIN [Concomitant]
     Dosage: UNK
  3. EZETIMIBE [Concomitant]
     Dosage: UNK
  4. XALATAN [Concomitant]
     Dosage: UNK
  5. CORDARONE [Suspect]
     Dosage: 200 MG, 1X/DAY
     Route: 048
     Dates: start: 20070101
  6. SYMBICORT [Concomitant]
     Dosage: UNK
  7. CORDARONE [Suspect]
     Dosage: 200 MG, 1X/DAY
     Route: 048
     Dates: start: 20110926
  8. NORVASC [Concomitant]
     Dosage: UNK
  9. COLACE [Concomitant]
     Dosage: UNK
  10. BIAXIN [Suspect]
     Dosage: 1 TABLET, 2X/DAY
     Dates: start: 20111003, end: 20111011
  11. DIGOXIN [Concomitant]
     Dosage: UNK
  12. SYNTHROID [Concomitant]
     Dosage: UNK
  13. NEXIUM [Concomitant]
     Dosage: UNK

REACTIONS (3)
  - RASH GENERALISED [None]
  - PARAESTHESIA [None]
  - THROAT IRRITATION [None]
